FAERS Safety Report 5957638-X (Version None)
Quarter: 2008Q4

REPORT INFORMATION
  Report Type: 
  Country: None (occurrence: None)
  Receive Date: 20081110
  Receipt Date: 20081022
  Transmission Date: 20090506
  Serious: Yes (Hospitalization)
  Sender: FDA-Public Use
  Company Number: B0544500A

PATIENT
  Age: 36 Year
  Sex: Female

DRUGS (1)
  1. FLOLAN [Suspect]
     Indication: PULMONARY HYPERTENSION
     Dosage: NTRAVENOUS
     Route: 042

REACTIONS (8)
  - BACTERAEMIA [None]
  - CONDITION AGGRAVATED [None]
  - DYSPNOEA [None]
  - ESCHERICHIA INFECTION [None]
  - MICROCOCCUS INFECTION [None]
  - PATHOGEN RESISTANCE [None]
  - RALES [None]
  - URINARY TRACT INFECTION [None]
